FAERS Safety Report 10617620 (Version 4)
Quarter: 2016Q3

REPORT INFORMATION
  Report Type: Spontaneous
  Country: US (occurrence: US)
  Receive Date: 20141201
  Receipt Date: 20160722
  Transmission Date: 20161109
  Serious: Yes (Hospitalization)
  Sender: FDA-Public Use
  Company Number: US-SA-2014SA162509

PATIENT
  Age: 57 Year
  Sex: Female

DRUGS (13)
  1. CARDIZEM [Concomitant]
     Active Substance: DILTIAZEM HYDROCHLORIDE
  2. PLAVIX [Concomitant]
     Active Substance: CLOPIDOGREL BISULFATE
  3. HEPSERA [Concomitant]
     Active Substance: ADEFOVIR DIPIVOXIL
  4. CALCIUM [Concomitant]
     Active Substance: CALCIUM
  5. AMPYRA [Concomitant]
     Active Substance: DALFAMPRIDINE
  6. AUBAGIO [Suspect]
     Active Substance: TERIFLUNOMIDE
     Indication: MULTIPLE SCLEROSIS
     Route: 048
     Dates: start: 20130824
  7. LEVOTHYROXINE. [Concomitant]
     Active Substance: LEVOTHYROXINE
  8. CLARITIN [Concomitant]
     Active Substance: LORATADINE
  9. ZETIA [Concomitant]
     Active Substance: EZETIMIBE
  10. CLONAZEPAM. [Concomitant]
     Active Substance: CLONAZEPAM
  11. METOPROLOL SUCCINATE. [Concomitant]
     Active Substance: METOPROLOL SUCCINATE
  12. LIPITOR [Concomitant]
     Active Substance: ATORVASTATIN CALCIUM
  13. ASPIRIN. [Concomitant]
     Active Substance: ASPIRIN

REACTIONS (3)
  - Myocardial infarction [Unknown]
  - Diabetic ketoacidosis [Unknown]
  - Cerebrovascular accident [Recovering/Resolving]

NARRATIVE: CASE EVENT DATE: 20141120
